FAERS Safety Report 4744891-3 (Version None)
Quarter: 2005Q3

REPORT INFORMATION
  Report Type: 
  Country: None (occurrence: None)
  Receive Date: 20050811
  Receipt Date: 20050801
  Transmission Date: 20060218
  Serious: Yes (Other)
  Sender: FDA-Public Use
  Company Number: 2005111501

PATIENT
  Age: 28 Year
  Sex: Female

DRUGS (2)
  1. SOLU-MEDROL [Suspect]
     Indication: ILL-DEFINED DISORDER
     Dosage: 1 GRAM (1 GRAM, 1 IN 1 D), INTRAVENOUS
     Route: 042
     Dates: start: 20050729, end: 20050729
  2. TRAMADOL HCL [Concomitant]

REACTIONS (5)
  - ANGIONEUROTIC OEDEMA [None]
  - EYE PRURITUS [None]
  - OEDEMA PERIPHERAL [None]
  - ORAL PRURITUS [None]
  - SWOLLEN TONGUE [None]
